FAERS Safety Report 7489113-8 (Version None)
Quarter: 2011Q2

REPORT INFORMATION
  Report Type: 
  Country: None (occurrence: None)
  Receive Date: 20110518
  Receipt Date: 20110428
  Transmission Date: 20111010
  Serious: No
  Sender: FDA-Public Use
  Company Number: US-B.I. PHARMACEUTICALS,INC./RIDGEFIELD-2011-BP-03307BP

PATIENT
  Sex: Female

DRUGS (9)
  1. DIOVAN [Concomitant]
     Indication: BLOOD PRESSURE
     Dosage: 80 MG
     Route: 048
     Dates: start: 20101215
  2. DILTIAZEM [Concomitant]
     Indication: CARDIAC DISORDER
     Dosage: 120 MG
     Route: 048
     Dates: start: 20101215
  3. VITAMIN E [Concomitant]
     Indication: SUPPLEMENTATION THERAPY
  4. ALENDRONATE SODIUM [Concomitant]
     Indication: OSTEOPOROSIS
     Dosage: 10 MG
     Route: 048
  5. PRADAXA [Suspect]
     Indication: ANTICOAGULANT THERAPY
  6. VITAMIN C [Concomitant]
     Indication: SUPPLEMENTATION THERAPY
  7. CALCIUM CARBONATE [Concomitant]
     Indication: SUPPLEMENTATION THERAPY
  8. GLUCOSAMINE [Concomitant]
     Indication: ARTHROPATHY
  9. PRADAXA [Suspect]
     Indication: ATRIAL FIBRILLATION
     Dosage: 300 MG
     Route: 048
     Dates: start: 20101215

REACTIONS (1)
  - ABNORMAL FAECES [None]
